FAERS Safety Report 9442114 (Version 3)
Quarter: 2014Q1

REPORT INFORMATION
  Report Type: Report from Study
  Country: JP (occurrence: JP)
  Receive Date: 20130806
  Receipt Date: 20140225
  Transmission Date: 20141002
  Serious: Yes (Death, Other)
  Sender: FDA-Public Use
  Company Number: PHHY2013JP083253

PATIENT
  Age: 61 Year
  Sex: Male
  Weight: 51 kg

DRUGS (99)
  1. CERTICAN [Suspect]
     Indication: HEART TRANSPLANT
     Dates: start: 20110723
  2. CERTICAN [Suspect]
     Dosage: 1 MG, DAILY
     Route: 048
     Dates: start: 20111018, end: 20111021
  3. CERTICAN [Suspect]
     Dosage: 1.5 MG, DAILY
     Route: 048
     Dates: start: 20111022, end: 20111026
  4. CERTICAN [Suspect]
     Dosage: 1.75 MG, DAILY
     Route: 048
     Dates: start: 20111027, end: 20111031
  5. CERTICAN [Suspect]
     Dosage: 2 MG, DAILY
     Route: 048
     Dates: start: 20111101, end: 20111103
  6. CERTICAN [Suspect]
     Dosage: 2.25 MG, DAILY
     Route: 048
     Dates: start: 20111104, end: 20111107
  7. CERTICAN [Suspect]
     Dosage: 2.5 MG, DAILY
     Route: 048
     Dates: start: 20111108, end: 20111113
  8. CERTICAN [Suspect]
     Dosage: 2.75 MG, DAILY
     Route: 048
     Dates: start: 20111114, end: 20111116
  9. CERTICAN [Suspect]
     Dosage: 3 MG, DAILY
     Route: 048
     Dates: start: 20111117, end: 20111117
  10. CERTICAN [Suspect]
     Dosage: 3.25 MG, DAILY
     Route: 048
     Dates: start: 20111118, end: 20111121
  11. CERTICAN [Suspect]
     Dosage: 3.5 MG, DAILY
     Route: 048
     Dates: start: 20111122, end: 20111123
  12. CERTICAN [Suspect]
     Dosage: 3.75 MG, DAILY
     Route: 048
     Dates: start: 20111124, end: 20111130
  13. CERTICAN [Suspect]
     Dosage: 3.5 MG, DAILY
     Route: 048
     Dates: start: 20111201, end: 20111207
  14. CERTICAN [Suspect]
     Dosage: 3.25 MG, UNK
     Route: 048
     Dates: start: 20111208, end: 20111208
  15. CERTICAN [Suspect]
     Dosage: 3 MG DAILY
     Route: 048
     Dates: start: 20111209, end: 20111211
  16. CERTICAN [Suspect]
     Dosage: 2.75 MG DAILY
     Route: 048
     Dates: start: 20111212, end: 20111216
  17. CERTICAN [Suspect]
     Dosage: 2.5 MG DAILY
     Dates: start: 20111217, end: 20111218
  18. CERTICAN [Suspect]
     Dosage: 2.25 MG DAILY
     Route: 048
     Dates: start: 20111219, end: 20111220
  19. CERTICAN [Suspect]
     Dosage: 2 MG DAILY
     Route: 048
     Dates: start: 20111221, end: 20111223
  20. CERTICAN [Suspect]
     Dosage: 1.75 MG DAILY
     Route: 048
     Dates: start: 20111224, end: 20111225
  21. CERTICAN [Suspect]
     Dosage: 1.5 MG, DAILY
     Route: 048
     Dates: start: 20111226, end: 20111227
  22. CERTICAN [Suspect]
     Dosage: 1.25 MG DAILY
     Route: 048
     Dates: start: 20111228, end: 20111231
  23. CERTICAN [Suspect]
     Dosage: 1.5 MG DAILY
     Route: 048
     Dates: start: 20120101, end: 20120119
  24. CERTICAN [Suspect]
     Dosage: 0.75 MG DAILY
     Route: 048
     Dates: start: 20120120, end: 20120120
  25. CERTICAN [Suspect]
     Dosage: 1.5 MG DAILY
     Route: 048
     Dates: start: 20120121, end: 20120123
  26. CERTICAN [Suspect]
     Dosage: 1.75 MG DAILY
     Route: 048
     Dates: start: 20120124, end: 20120124
  27. CERTICAN [Suspect]
     Dosage: 1 MG DAILY
     Route: 048
     Dates: start: 20120125, end: 20120127
  28. CERTICAN [Suspect]
     Dosage: 1.5 MG DAILY
     Route: 048
     Dates: start: 20120128, end: 20120129
  29. CERTICAN [Suspect]
     Dosage: 1.75 MG DAILY
     Route: 048
     Dates: start: 20120130, end: 20120202
  30. CERTICAN [Suspect]
     Dosage: 1.5 MG DAILY
     Route: 048
     Dates: start: 20120203, end: 20120209
  31. CERTICAN [Suspect]
     Dosage: 1.75 MG DAILY
     Route: 048
     Dates: start: 20120210, end: 20120221
  32. CERTICAN [Suspect]
     Dosage: 2.25 MG, DAILY
     Route: 048
     Dates: start: 20120222, end: 20120222
  33. CERTICAN [Suspect]
     Dosage: 1.5 MG
     Route: 048
     Dates: start: 20120223, end: 20120226
  34. CERTICAN [Suspect]
     Dosage: 0.75 MG, DAILY
     Route: 048
     Dates: start: 20120227, end: 20120228
  35. CERTICAN [Suspect]
     Dosage: 0.25 MG, DAILY
     Route: 048
     Dates: start: 20120229, end: 20120307
  36. FORTEO [Suspect]
     Indication: PROPHYLAXIS
     Dosage: 20 UG, UNK
     Route: 058
     Dates: start: 20120224, end: 20120304
  37. FORTEO [Suspect]
     Indication: OSTEOPOROSIS
  38. PREDONINE [Suspect]
     Indication: HEART TRANSPLANT
     Dates: start: 20110723
  39. PREDONINE [Suspect]
     Dosage: 30 MG, DAILY
     Route: 042
     Dates: start: 20111202, end: 20111206
  40. PREDONINE [Suspect]
     Dosage: 25 MG, DAILY
     Route: 042
     Dates: start: 20111207, end: 20111211
  41. PREDONINE [Suspect]
     Dosage: 20 MG, DAILY
     Route: 042
     Dates: start: 20111212, end: 20111217
  42. PREDONINE [Suspect]
     Dosage: 15 MG DAILY
     Route: 042
     Dates: start: 20111217, end: 20120130
  43. PREDONINE [Suspect]
     Dosage: 30 MG DAILY
     Route: 042
     Dates: start: 20120203, end: 20120207
  44. PREDONINE [Suspect]
     Dosage: 25 MG DAILY
     Route: 042
     Dates: start: 20120208, end: 20120212
  45. PREDONINE [Suspect]
     Dosage: 20 MG DAILY
     Route: 042
     Dates: start: 20120213, end: 20120219
  46. PREDONINE [Suspect]
     Dosage: 17.5 MG, DAILY
     Route: 042
     Dates: start: 20120220, end: 20120307
  47. CELLCEPT [Concomitant]
     Dosage: UNK UKN, UNK
     Dates: start: 20111129
  48. CORTICOSTEROIDS [Concomitant]
     Dosage: UNK UKN, UNK
  49. BONALON [Concomitant]
     Indication: OSTEOPOROSIS
     Dosage: 35 MG, UNK
     Route: 048
     Dates: start: 20120109, end: 20120223
  50. PREDNISOLONE [Concomitant]
     Indication: HEART TRANSPLANT
     Dosage: 15 MG,
     Route: 048
     Dates: start: 20111028
  51. PREDNISOLONE [Concomitant]
     Dosage: 10 MG, UNK
     Route: 048
  52. PREDNISOLONE [Concomitant]
     Dosage: 15 MG, UNK
     Route: 048
  53. MYCOPHENOLATE MOFETIL [Concomitant]
     Indication: HEART TRANSPLANT
     Dosage: 250 MG, UNK
     Route: 048
     Dates: start: 20111014
  54. MYCOPHENOLATE MOFETIL [Concomitant]
     Dosage: 500 MG, UNK
     Route: 048
  55. MYCOPHENOLATE MOFETIL [Concomitant]
     Dosage: 750 MG, UNK
     Route: 048
  56. MYCOPHENOLATE MOFETIL [Concomitant]
     Dosage: 1000 MG, UNK
     Route: 048
  57. MYCOPHENOLATE MOFETIL [Concomitant]
     Dosage: 1750 MG, UNK
     Route: 048
  58. MYCOPHENOLATE MOFETIL [Concomitant]
     Dosage: 20000 MG, UNK
     Route: 048
     Dates: end: 20120308
  59. SOL-MELCORT [Concomitant]
     Indication: HEART TRANSPLANT
     Dosage: 1 G, UNK
     Route: 042
     Dates: start: 20111129
  60. SOL-MELCORT [Concomitant]
     Dosage: 1 G, UNK
     Route: 042
     Dates: end: 20120202
  61. PROGRAF [Concomitant]
     Indication: HEART TRANSPLANT
     Dosage: 1.2 MG, UNK
     Route: 048
     Dates: start: 20111014
  62. PROGRAF [Concomitant]
     Dosage: 1.4 MG, UNK
     Route: 048
  63. PROGRAF [Concomitant]
     Dosage: 1.6 MG, UNK
     Route: 048
  64. PROGRAF [Concomitant]
     Dosage: 1.4 MG, UNK
     Route: 048
  65. PROGRAF [Concomitant]
     Dosage: 1.6 MG, UNK
     Route: 048
  66. PROGRAF [Concomitant]
     Dosage: 1.8 MG, UNK
     Route: 048
  67. PROGRAF [Concomitant]
     Dosage: 2.0 MG, UNK
     Route: 048
  68. PROGRAF [Concomitant]
     Dosage: 1.2 MG, UNK
     Route: 048
  69. PROGRAF [Concomitant]
     Dosage: 1.4 MG, UNK
     Route: 048
  70. PROGRAF [Concomitant]
     Dosage: 1.6 MG, UNK
     Route: 048
  71. PROGRAF [Concomitant]
     Dosage: 2.0 MG, UNK
     Route: 048
  72. PROGRAF [Concomitant]
     Dosage: 2.2 MG, UNK
     Route: 048
  73. PROGRAF [Concomitant]
     Dosage: 2.4 MG, UNK
     Route: 048
  74. PROGRAF [Concomitant]
     Dosage: 2.6 MG, UNK
     Route: 048
  75. PROGRAF [Concomitant]
     Dosage: 2.8 MG, UNK
     Route: 048
  76. PROGRAF [Concomitant]
     Dosage: 1.4 MG, UNK
     Route: 048
  77. PROGRAF [Concomitant]
     Dosage: 0.5 MG, UNK
     Route: 048
  78. PROGRAF [Concomitant]
     Dosage: 0.7 MG, UNK
     Route: 048
  79. PROGRAF [Concomitant]
     Dosage: 1.2 MG, UNK
     Route: 048
  80. PROGRAF [Concomitant]
     Dosage: 1.4 MG, UNK
     Route: 048
  81. PROGRAF [Concomitant]
     Dosage: 0.9 MG, UNK
     Route: 048
  82. PROGRAF [Concomitant]
     Dosage: 0.7 MG, UNK
     Route: 048
  83. PROGRAF [Concomitant]
     Dosage: 1.4 MG, UNK
     Route: 048
  84. PROGRAF [Concomitant]
     Dosage: 1.2 MG, UNK
     Route: 048
  85. PROGRAF [Concomitant]
     Dosage: 1.4 MG, UNK
     Route: 048
  86. PROGRAF [Concomitant]
     Dosage: 1 MG, UNK
     Route: 048
  87. PROGRAF [Concomitant]
     Dosage: 1.4 MG, UNK
     Route: 048
  88. PROGRAF [Concomitant]
     Dosage: 1 MG, UNK
     Route: 048
  89. PROGRAF [Concomitant]
     Dosage: 1.4 MG, UNK
     Route: 048
  90. PROGRAF [Concomitant]
     Dosage: 0.7 MG, UNK
     Route: 048
  91. PROGRAF [Concomitant]
     Dosage: 1.2 MG, UNK
     Route: 048
  92. PROGRAF [Concomitant]
     Dosage: 1.4 MG, UNK
     Route: 048
  93. PROGRAF [Concomitant]
     Dosage: 0.6 MG, UNK
     Route: 048
  94. PROGRAF [Concomitant]
     Dosage: 0.5 MG, UNK
     Route: 048
  95. PROGRAF [Concomitant]
     Dosage: 0.4 MG, UNK
     Route: 048
  96. PROGRAF [Concomitant]
     Dosage: 0.2 MG, UNK
     Route: 048
     Dates: end: 20120307
  97. LIPITOR [Concomitant]
     Dosage: 5 MG, UNK
     Route: 048
     Dates: end: 20120119
  98. BUFERIN [Concomitant]
     Indication: PROPHYLAXIS
     Dosage: 81 MG, UNK
     Route: 048
     Dates: end: 20120106
  99. BAYASPIRIN [Concomitant]
     Indication: PROPHYLAXIS
     Dosage: 100 MG, UNK
     Route: 048

REACTIONS (19)
  - Circulatory collapse [Fatal]
  - Respiratory failure [Fatal]
  - Septic shock [Fatal]
  - Ascites [Fatal]
  - Pulmonary congestion [Fatal]
  - Hepatomegaly [Fatal]
  - Pulmonary oedema [Fatal]
  - Lung disorder [Fatal]
  - Intestinal obstruction [Fatal]
  - Gastrointestinal oedema [Fatal]
  - Gastrointestinal necrosis [Fatal]
  - Decreased appetite [Fatal]
  - Multi-organ failure [Fatal]
  - Vomiting [Fatal]
  - Ileus paralytic [Unknown]
  - Heart transplant rejection [Recovered/Resolved]
  - Lumbar vertebral fracture [Not Recovered/Not Resolved]
  - Immunosuppressant drug level increased [Recovered/Resolved]
  - Blood cholesterol increased [Unknown]
